FAERS Safety Report 5269907-X (Version None)
Quarter: 2007Q1

REPORT INFORMATION
  Report Type: 
  Country: None (occurrence: None)
  Receive Date: 20070314
  Receipt Date: 20070305
  Transmission Date: 20070707
  Serious: No
  Sender: FDA-Public Use
  Company Number: 2007-155438-NL

PATIENT
  Age: 11 Year
  Sex: Male

DRUGS (12)
  1. VECURONIUM BROMIDE [Suspect]
     Indication: INDUCTION OF ANAESTHESIA
     Dosage: INTRAVENOUS (NOS)
     Route: 042
  2. VALPROATE BISMUTH [Concomitant]
  3. CARBAMAZEPINE [Concomitant]
  4. PHENOBARBITAL TAB [Concomitant]
  5. MIDAZOLAM HCL [Concomitant]
  6. LIDOCAINE [Concomitant]
  7. ISOFLURANE [Concomitant]
  8. FENTANYL [Concomitant]
  9. THIOPENTAL SODIUM [Concomitant]
  10. SEVOFLURANE [Concomitant]
  11. OXYGEN [Concomitant]
  12. NITROUS OXIDE W/ OXYGEN [Concomitant]

REACTIONS (4)
  - HYPOTENSION [None]
  - NEUROLEPTIC MALIGNANT SYNDROME [None]
  - POSTOPERATIVE ILEUS [None]
  - TRACHEOSTOMY [None]
